FAERS Safety Report 23783531 (Version 5)
Quarter: 2025Q2

REPORT INFORMATION
  Report Type: Spontaneous
  Country: US (occurrence: US)
  Receive Date: 20240425
  Receipt Date: 20250611
  Transmission Date: 20250717
  Serious: Yes (Other)
  Sender: Kenvue
  Company Number: US-JNJFOC-20240464923

PATIENT
  Sex: Female

DRUGS (19)
  1. TYLENOL EXTRA STRENGTH [Suspect]
     Active Substance: ACETAMINOPHEN
     Indication: Toothache
     Route: 064
     Dates: start: 201401, end: 201410
  2. TYLENOL EXTRA STRENGTH [Suspect]
     Active Substance: ACETAMINOPHEN
     Indication: Neck pain
  3. TYLENOL EXTRA STRENGTH [Suspect]
     Active Substance: ACETAMINOPHEN
     Indication: Back pain
  4. ACETAMINOPHEN [Suspect]
     Active Substance: ACETAMINOPHEN
     Indication: Toothache
     Route: 064
     Dates: start: 201401, end: 201410
  5. ACETAMINOPHEN [Suspect]
     Active Substance: ACETAMINOPHEN
     Indication: Neck pain
  6. ACETAMINOPHEN [Suspect]
     Active Substance: ACETAMINOPHEN
     Indication: Back pain
  7. taxadera [Concomitant]
     Indication: Multiple sclerosis
     Route: 064
  8. METFORMIN HYDROCHLORIDE [Concomitant]
     Active Substance: METFORMIN HYDROCHLORIDE
     Indication: Product used for unknown indication
     Dosage: 500 MILLIGRAM, ONCE A DAY
     Route: 064
     Dates: start: 20130522, end: 20140602
  9. AZITHROMYCIN [Concomitant]
     Active Substance: AZITHROMYCIN
     Indication: Product used for unknown indication
     Dosage: 2 DOSAGE FORM, ONCE A DAY (ON DAY 1)
     Route: 064
     Dates: start: 20140606, end: 20140613
  10. AZITHROMYCIN [Concomitant]
     Active Substance: AZITHROMYCIN
     Dosage: 2 DOSAGE FORM, ONCE A DAY (ON DAY 1)
     Route: 064
     Dates: start: 20140606, end: 20140613
  11. CLOMID [Concomitant]
     Active Substance: CLOMIPHENE CITRATE
     Indication: Product used for unknown indication
     Dosage: 50 MILLIGRAM, ONCE A DAY
     Route: 064
     Dates: start: 20130920, end: 20140319
  12. ALBUTEROL SULFATE [Concomitant]
     Active Substance: ALBUTEROL SULFATE
     Indication: Product used for unknown indication
     Route: 064
     Dates: start: 20140606, end: 20140805
  13. PROVERA [Concomitant]
     Active Substance: MEDROXYPROGESTERONE ACETATE
     Indication: Product used for unknown indication
     Dosage: 10 MILLIGRAM, TWICE A DAY
     Route: 064
     Dates: start: 20130920, end: 20140217
  14. CODEINE\PROMETHAZINE [Concomitant]
     Active Substance: CODEINE\PROMETHAZINE
     Indication: Product used for unknown indication
     Route: 064
     Dates: start: 20140606, end: 20140805
  15. TETANUS TOXOID, REDUCED DIPHTHERIA TOXOID AND ACELLULAR PERTUSSIS VACC [Concomitant]
     Active Substance: TETANUS TOXOID, REDUCED DIPHTHERIA TOXOID AND ACELLULAR PERTUSSIS VACCINE ADSORBED, TDAP
     Indication: Immunisation
     Route: 064
     Dates: start: 20140805, end: 20141004
  16. VITAMINS [Concomitant]
     Active Substance: VITAMINS
     Indication: Prenatal care
     Route: 064
  17. prenatal gummies [Concomitant]
     Indication: Prenatal care
     Route: 064
     Dates: start: 20140602
  18. TOLTERODINE [Concomitant]
     Active Substance: TOLTERODINE
     Indication: Product used for unknown indication
     Route: 048
     Dates: start: 20140323
  19. TECFIDERA [Concomitant]
     Active Substance: DIMETHYL FUMARATE
     Indication: Product used for unknown indication
     Route: 064

REACTIONS (2)
  - Autism spectrum disorder [Unknown]
  - Foetal exposure during pregnancy [Unknown]

NARRATIVE: CASE EVENT DATE: 20140101
